FAERS Safety Report 8878998 (Version 6)
Quarter: 2014Q1

REPORT INFORMATION
  Report Type: Spontaneous
  Country: US (occurrence: US)
  Receive Date: 20121026
  Receipt Date: 20140123
  Transmission Date: 20141002
  Serious: Yes (Hospitalization, Other)
  Sender: FDA-Public Use
  Company Number: US-009507513-1210USA007969

PATIENT
  Sex: Female
  Weight: 52.61 kg

DRUGS (5)
  1. FOSAMAX [Suspect]
     Indication: OSTEOPOROSIS
     Dosage: 70 MG, QW
     Route: 048
     Dates: start: 1997, end: 200710
  2. FOSAMAX [Suspect]
     Indication: OSTEOPENIA
  3. FOSAMAX [Suspect]
     Indication: OSTEOPOROSIS
     Dosage: 70 MG, QW
     Route: 048
     Dates: start: 1997, end: 2012
  4. ALENDRONATE SODIUM [Suspect]
     Dosage: 70 MG, QW
  5. DIPHENHYDRAMINE HYDROCHLORIDE [Concomitant]
     Indication: HYPERSENSITIVITY

REACTIONS (44)
  - Femur fracture [Unknown]
  - Intramedullary rod insertion [Unknown]
  - Pulmonary embolism [Unknown]
  - Lower limb fracture [Recovered/Resolved]
  - Upper limb fracture [Recovered/Resolved]
  - Knee operation [Unknown]
  - Stress fracture [Unknown]
  - Impaired healing [Unknown]
  - Low turnover osteopathy [Unknown]
  - Anxiety [Unknown]
  - Fall [Unknown]
  - Body height decreased [Unknown]
  - Adverse event [Unknown]
  - Ligament sprain [Unknown]
  - Arthropathy [Unknown]
  - Osteoarthritis [Unknown]
  - Atrophic vulvovaginitis [Unknown]
  - Dyspareunia [Unknown]
  - Weight decreased [Unknown]
  - Bronchitis [Unknown]
  - Scoliosis [Unknown]
  - Osteoarthritis [Unknown]
  - Sciatica [Unknown]
  - Intervertebral disc space narrowing [Unknown]
  - Cardiac murmur [Unknown]
  - Mitral valve prolapse [Unknown]
  - Hysterectomy [Unknown]
  - Gastrointestinal haemorrhage [Unknown]
  - Faeces discoloured [Unknown]
  - Emphysema [Not Recovered/Not Resolved]
  - Osteoarthritis [Unknown]
  - Lymphadenopathy [Unknown]
  - Neoplasm [Unknown]
  - Pain [Unknown]
  - Adverse event [Unknown]
  - Oropharyngeal pain [Unknown]
  - Vomiting [Unknown]
  - Arthralgia [Unknown]
  - Drug hypersensitivity [Unknown]
  - Nausea [Unknown]
  - Dyspepsia [Unknown]
  - Dyspepsia [Unknown]
  - Dysphagia [Unknown]
  - Abdominal pain upper [Unknown]
